FAERS Safety Report 6121366-0 (Version None)
Quarter: 2009Q1

REPORT INFORMATION
  Report Type: 
  Country: None (occurrence: None)
  Receive Date: 20090317
  Receipt Date: 20090309
  Transmission Date: 20090719
  Serious: Yes (Other)
  Sender: FDA-Public Use
  Company Number: JP-MERCK-0903USA02184

PATIENT
  Age: 74 Year
  Sex: Male

DRUGS (3)
  1. COZAAR [Suspect]
     Route: 048
     Dates: start: 20090108, end: 20090307
  2. HYZAAR [Suspect]
     Route: 048
     Dates: start: 20090108, end: 20090307
  3. LIVALO [Suspect]
     Route: 048
     Dates: start: 20071201, end: 20090307

REACTIONS (1)
  - BLOOD CREATINE PHOSPHOKINASE INCREASED [None]
